FAERS Safety Report 10407928 (Version 1)
Quarter: 2014Q3

REPORT INFORMATION
  Report Type: Spontaneous
  Country: US (occurrence: US)
  Receive Date: 20140825
  Receipt Date: 20140825
  Transmission Date: 20150326
  Serious: No
  Sender: FDA-Public Use
  Company Number: US-009507513-1408USA012318

PATIENT
  Age: 61 Year
  Sex: Female

DRUGS (2)
  1. MECHLORETHAMINE HYDROCHLORIDE [Concomitant]
     Active Substance: MECHLORETHAMINE HYDROCHLORIDE
     Dosage: 6 MG/M2, UNKNOWN
     Route: 042
  2. METHYLPREDNISOLONE SODIUM SUCCINATE. [Suspect]
     Active Substance: METHYLPREDNISOLONE SODIUM SUCCINATE
     Indication: BLOOD BILIRUBIN INCREASED
     Dosage: 2 G, QD, FOR 10 DAYS
     Route: 042

REACTIONS (1)
  - Drug ineffective [Unknown]
